FAERS Safety Report 25451127 (Version 1)
Quarter: 2025Q2

REPORT INFORMATION
  Report Type: Spontaneous
  Country: US (occurrence: US)
  Receive Date: 20250618
  Receipt Date: 20250618
  Transmission Date: 20250716
  Serious: No
  Sender: BRISTOL-MYERS SQUIBB COMPANY
  Company Number: US-BRISTOL-MYERS SQUIBB COMPANY-2025-086817

PATIENT
  Sex: Male

DRUGS (1)
  1. ELIQUIS [Interacting]
     Active Substance: APIXABAN
     Indication: Product used for unknown indication

REACTIONS (1)
  - Drug interaction [Unknown]
